FAERS Safety Report 4453357-X (Version None)
Quarter: 2004Q3

REPORT INFORMATION
  Report Type: 
  Country: None (occurrence: None)
  Receive Date: 20040920
  Receipt Date: 20040909
  Transmission Date: 20050211
  Serious: Yes (Hospitalization)
  Sender: FDA-Public Use
  Company Number: US-JNJFOC-20040903036

PATIENT
  Age: 62 Year
  Sex: Female
  Weight: 92.53 kg

DRUGS (5)
  1. TOPAMAX [Suspect]
     Route: 049
  2. DILANTIN [Suspect]
     Indication: DRUG USE FOR UNKNOWN INDICATION
  3. ASTHMA MEDICATIONS [Concomitant]
  4. ANTIHYPERTENSIVES [Concomitant]
  5. DITROPAN XL [Concomitant]

REACTIONS (4)
  - BLOOD MAGNESIUM ABNORMAL [None]
  - BLOOD POTASSIUM ABNORMAL [None]
  - FALL [None]
  - SKIN LACERATION [None]
